FAERS Safety Report 21959068 (Version 1)
Quarter: 2023Q1

REPORT INFORMATION
  Report Type: Spontaneous
  Country: BR (occurrence: BR)
  Receive Date: 20230206
  Receipt Date: 20230206
  Transmission Date: 20230418
  Serious: Yes (Hospitalization, Other)
  Sender: FDA-Public Use
  Company Number: BR-SA-SAC20230120000617

PATIENT
  Age: 30 Year
  Sex: Female
  Weight: 210 kg

DRUGS (11)
  1. TOUJEO [Suspect]
     Active Substance: INSULIN GLARGINE
     Indication: Diabetes mellitus
     Dosage: UNK UNK, QD
     Route: 058
     Dates: start: 202211
  2. CARBAMAZEPINE [Concomitant]
     Active Substance: CARBAMAZEPINE
     Dosage: UNK, BID (MORE THAN ONE YEAR)
     Route: 048
  3. BROMOPRIDE [Concomitant]
     Active Substance: BROMOPRIDE
     Dosage: UNK, QD (MORE THAN ONE YEAR)
     Route: 048
  4. ATENOLOL [Concomitant]
     Active Substance: ATENOLOL
     Indication: Blood pressure management
     Dosage: 2 TABLETS IN THE MORNING AND ONE AT NIGHT
     Route: 048
     Dates: start: 2019
  5. CLONAZEPAM [Concomitant]
     Active Substance: CLONAZEPAM
     Indication: Emotional disorder
     Dosage: UNK, QD (MORE THAN TWO YEARS)
     Route: 048
  6. TRAMADOL [Concomitant]
     Active Substance: TRAMADOL
     Indication: Pain
     Dosage: UNK, BID (MORNING AND EVENING)
     Route: 048
     Dates: start: 2022
  7. SPIRONOLACTONE [Concomitant]
     Active Substance: SPIRONOLACTONE
     Indication: Micturition disorder
     Dosage: 1 DF, QD
     Route: 048
     Dates: start: 20221229
  8. FUROSEMIDE [Concomitant]
     Active Substance: FUROSEMIDE
     Indication: Sodium retention
     Dosage: 1 DF, QD
     Route: 048
     Dates: start: 20221229
  9. TORSILAX [Concomitant]
     Active Substance: ACETAMINOPHEN\CAFFEINE\CARISOPRODOL\DICLOFENAC
     Indication: Muscle relaxant therapy
     Dosage: 1 DF, QD
     Route: 048
     Dates: start: 202206
  10. ARIPIPRAZOLE [Concomitant]
     Active Substance: ARIPIPRAZOLE
     Indication: Affective disorder
     Dosage: 2 DF, QD (2 TABLETS IN THE MORNING) (MORE THAN TWO YEARS)
     Route: 048
  11. LITHIUM CARBONATE [Concomitant]
     Active Substance: LITHIUM CARBONATE
     Indication: Bipolar disorder
     Dosage: UNK, BID (MORE THAN TWO YEARS)
     Route: 048

REACTIONS (6)
  - Skin infection [Recovering/Resolving]
  - Nervousness [Recovering/Resolving]
  - Diabetes mellitus inadequate control [Not Recovered/Not Resolved]
  - Peripheral swelling [Recovering/Resolving]
  - Erythema [Recovered/Resolved]
  - Pruritus [Recovering/Resolving]

NARRATIVE: CASE EVENT DATE: 20221227
